FAERS Safety Report 8451122-X (Version None)
Quarter: 2012Q2

REPORT INFORMATION
  Report Type: 
  Country: None (occurrence: None)
  Receive Date: 20120620
  Receipt Date: 20120611
  Transmission Date: 20120825
  Serious: Yes (Hospitalization)
  Sender: FDA-Public Use
  Company Number: US-ASTRAZENECA-2009UW08241

PATIENT
  Age: 78 Year
  Sex: Male

DRUGS (2)
  1. TOPROL-XL [Suspect]
     Route: 048
  2. VALIUM [Concomitant]
     Indication: ANXIETY

REACTIONS (8)
  - DRUG DOSE OMISSION [None]
  - BLOOD PRESSURE INCREASED [None]
  - ANXIETY [None]
  - DIABETES MELLITUS [None]
  - FEELING ABNORMAL [None]
  - CARDIAC DISORDER [None]
  - STRESS [None]
  - HEART RATE INCREASED [None]
